FAERS Safety Report 4893304-X (Version None)
Quarter: 2006Q1

REPORT INFORMATION
  Report Type: 
  Country: None (occurrence: None)
  Receive Date: 20060124
  Receipt Date: 20060117
  Transmission Date: 20060701
  Serious: Yes (Death)
  Sender: FDA-Public Use
  Company Number: S05-USA-05179-02

PATIENT
  Sex: Female

DRUGS (1)
  1. LEXAPRO [Suspect]
     Dosage: 10 MG QD TRANSPLACENTAL
     Route: 064

REACTIONS (4)
  - DRUG EXPOSURE DURING PREGNANCY [None]
  - INFECTION [None]
  - PLACENTAL DISORDER [None]
  - PREMATURE LABOUR [None]
